FAERS Safety Report 8148156-1 (Version None)
Quarter: 2012Q1

REPORT INFORMATION
  Report Type: 
  Country: None (occurrence: None)
  Receive Date: 20120218
  Receipt Date: 20111014
  Transmission Date: 20120608
  Serious: No
  Sender: FDA-Public Use
  Company Number: US-ALLERGAN-1105895US

PATIENT
  Age: 48 Year
  Sex: Female
  Weight: 50.794 kg

DRUGS (5)
  1. XANAX [Concomitant]
  2. AMBIEN [Concomitant]
  3. BOTOX COSMETIC [Suspect]
     Indication: SKIN WRINKLING
     Dosage: 32 UNITS, SINGLE
     Route: 030
     Dates: start: 20110407, end: 20110407
  4. LEXAPRO [Concomitant]
  5. BOTOX COSMETIC [Suspect]
     Dosage: UNK
     Dates: start: 20101104, end: 20101104

REACTIONS (3)
  - DRY SKIN [None]
  - ERYTHEMA [None]
  - RASH [None]
